FAERS Safety Report 11347571 (Version 1)
Quarter: 2015Q3

REPORT INFORMATION
  Report Type: Spontaneous
  Country: US (occurrence: US)
  Receive Date: 20150803
  Receipt Date: 20150803
  Transmission Date: 20151125
  Serious: No
  Sender: FDA-Public Use
  Company Number: US-ELI_LILLY_AND_COMPANY-US201108003768

PATIENT
  Age: 51 Year
  Sex: Male

DRUGS (6)
  1. WELLBUTRIN [Concomitant]
     Active Substance: BUPROPION HYDROCHLORIDE
  2. AMITRIPTYLIN [Concomitant]
     Active Substance: AMITRIPTYLINE
  3. STRATTERA [Suspect]
     Active Substance: ATOMOXETINE HYDROCHLORIDE
     Indication: ATTENTION DEFICIT/HYPERACTIVITY DISORDER
     Dosage: 60 MG, BID
  4. THORAZINE [Concomitant]
     Active Substance: CHLORPROMAZINE
  5. KLONOPIN [Concomitant]
     Active Substance: CLONAZEPAM
  6. LITHIUM. [Concomitant]
     Active Substance: LITHIUM

REACTIONS (3)
  - Poor quality sleep [Unknown]
  - Mania [Unknown]
  - Somnolence [Unknown]

NARRATIVE: CASE EVENT DATE: 20110622
